FAERS Safety Report 11080990 (Version 1)
Quarter: 2015Q2

REPORT INFORMATION
  Report Type: Spontaneous
  Country: US (occurrence: US)
  Receive Date: 20150501
  Receipt Date: 20150501
  Transmission Date: 20150821
  Serious: Yes (Other)
  Sender: FDA-Public Use
  Company Number: US-RB-076594-15

PATIENT
  Age: 34 Year
  Sex: Male

DRUGS (1)
  1. MUCINEX [Suspect]
     Active Substance: GUAIFENESIN
     Indication: PRODUCT USED FOR UNKNOWN INDICATION
     Dosage: ONE PILL PER DAY. HE LAST TOOK THE DRUG ON 20-APR-2015.
     Route: 065
     Dates: start: 20150419

REACTIONS (2)
  - Blood glucose increased [Not Recovered/Not Resolved]
  - Confusional state [Unknown]

NARRATIVE: CASE EVENT DATE: 20150420
